FAERS Safety Report 11152002 (Version 1)
Quarter: 2015Q2

REPORT INFORMATION
  Report Type: Report from Study
  Country: US (occurrence: US)
  Receive Date: 20150601
  Receipt Date: 20150601
  Transmission Date: 20150821
  Serious: Yes (Other)
  Sender: FDA-Public Use
  Company Number: US-SA-2014SA065650

PATIENT
  Sex: Female
  Weight: 76 kg

DRUGS (2)
  1. AUBAGIO [Suspect]
     Active Substance: TERIFLUNOMIDE
     Indication: MULTIPLE SCLEROSIS
     Route: 048
     Dates: start: 201403, end: 20150403
  2. AUBAGIO [Suspect]
     Active Substance: TERIFLUNOMIDE
     Indication: MULTIPLE SCLEROSIS
     Route: 048
     Dates: start: 20140209

REACTIONS (10)
  - Reading disorder [Unknown]
  - Pruritus [Not Recovered/Not Resolved]
  - White blood cell count decreased [Unknown]
  - Upper respiratory tract infection [Not Recovered/Not Resolved]
  - Alopecia [Recovering/Resolving]
  - Ill-defined disorder [Unknown]
  - Urinary tract infection [Unknown]
  - Rash [Not Recovered/Not Resolved]
  - Muscular weakness [Unknown]
  - Hair texture abnormal [Unknown]

NARRATIVE: CASE EVENT DATE: 2014
